FAERS Safety Report 4502125-9 (Version None)
Quarter: 2004Q4

REPORT INFORMATION
  Report Type: 
  Country: None (occurrence: None)
  Receive Date: 20041116
  Receipt Date: 20041110
  Transmission Date: 20050328
  Serious: Yes (Hospitalization)
  Sender: FDA-Public Use
  Company Number: SE-MERCK-0411SWE00019

PATIENT
  Age: 57 Year
  Sex: Male

DRUGS (3)
  1. VIOXX [Suspect]
     Indication: PSORIATIC ARTHROPATHY
     Route: 048
     Dates: start: 20000905, end: 20000912
  2. VIOXX [Suspect]
     Route: 048
     Dates: start: 20000912, end: 20001029
  3. PREDNISOLONE [Concomitant]
     Route: 065

REACTIONS (3)
  - CARDIAC FAILURE [None]
  - CARDIOMYOPATHY [None]
  - PULMONARY OEDEMA [None]
